FAERS Safety Report 25767912 (Version 1)
Quarter: 2025Q3

REPORT INFORMATION
  Report Type: Spontaneous
  Country: US (occurrence: US)
  Receive Date: 20250905
  Receipt Date: 20250905
  Transmission Date: 20251021
  Serious: No
  Sender: DOMPE FARMACEUTICI
  Company Number: US-FARMAPROD-202505-1612

PATIENT
  Sex: Female

DRUGS (5)
  1. OXERVATE [Suspect]
     Active Substance: CENEGERMIN-BKBJ
     Indication: Neurotrophic keratopathy
     Route: 047
     Dates: start: 20250428
  2. GABAPENTIN [Concomitant]
     Active Substance: GABAPENTIN
  3. DIETARY SUPPLEMENT\HERBALS\MILK THISTLE [Concomitant]
     Active Substance: MILK THISTLE
  4. VITAMINS [Concomitant]
     Active Substance: VITAMINS
  5. ESTRADIOL [Concomitant]
     Active Substance: ESTRADIOL

REACTIONS (1)
  - Sciatica [Unknown]
